FAERS Safety Report 19506559 (Version 2)
Quarter: 2021Q3

REPORT INFORMATION
  Report Type: Report from Study
  Country: US (occurrence: US)
  Receive Date: 20210708
  Receipt Date: 20210803
  Transmission Date: 20211014
  Serious: Yes (Hospitalization)
  Sender: FDA-Public Use
  Company Number: US-SA-2021SA196526

PATIENT
  Age: 56 Year
  Sex: Female

DRUGS (22)
  1. PIOGLITAZONE HCL [Concomitant]
     Active Substance: PIOGLITAZONE
  2. FLONASE ALLERGY RELIEF [Concomitant]
     Active Substance: FLUTICASONE PROPIONATE
  3. PROAIR HFA [Concomitant]
     Active Substance: ALBUTEROL SULFATE
  4. SYMBICORT [Concomitant]
     Active Substance: BUDESONIDE\FORMOTEROL FUMARATE DIHYDRATE
     Dosage: 160?4.5MCG
  5. GLIPIZIDE. [Concomitant]
     Active Substance: GLIPIZIDE
  6. FLONASE ALLERGY RELIEF [Concomitant]
     Active Substance: FLUTICASONE PROPIONATE
  7. VENTOLIN HFA [Concomitant]
     Active Substance: ALBUTEROL SULFATE
  8. SINGULAIR [Concomitant]
     Active Substance: MONTELUKAST SODIUM
  9. PROAIR HFA [Concomitant]
     Active Substance: ALBUTEROL SULFATE
  10. FLOVENT HFA [Concomitant]
     Active Substance: FLUTICASONE PROPIONATE
  11. SINGULAIR [Concomitant]
     Active Substance: MONTELUKAST SODIUM
  12. DUPILUMAB [Suspect]
     Active Substance: DUPILUMAB
     Dosage: 300 MG, QOW
     Route: 058
     Dates: start: 2020
  13. GLIPIZIDE. [Concomitant]
     Active Substance: GLIPIZIDE
  14. SPIRIVA RESPIMAT [Concomitant]
     Active Substance: TIOTROPIUM BROMIDE
  15. ZYRTEC [Concomitant]
     Active Substance: CETIRIZINE HYDROCHLORIDE
  16. ZYRTEC [Concomitant]
     Active Substance: CETIRIZINE HYDROCHLORIDE
  17. SPIRIVA RESPIMAT [Concomitant]
     Active Substance: TIOTROPIUM BROMIDE
  18. VENTOLIN HFA [Concomitant]
     Active Substance: ALBUTEROL SULFATE
  19. FLOVENT HFA [Concomitant]
     Active Substance: FLUTICASONE PROPIONATE
  20. SYMBICORT [Concomitant]
     Active Substance: BUDESONIDE\FORMOTEROL FUMARATE DIHYDRATE
  21. DUPILUMAB [Suspect]
     Active Substance: DUPILUMAB
     Indication: ASTHMA
     Dosage: 600 MG, 1X
     Route: 058
     Dates: start: 20200301, end: 20200301
  22. PIOGLITAZONE HCL [Concomitant]
     Active Substance: PIOGLITAZONE

REACTIONS (8)
  - Wheezing [Unknown]
  - Contusion [Unknown]
  - Cough [Unknown]
  - Nasal polyps [Unknown]
  - Product use issue [Unknown]
  - Inappropriate schedule of product administration [Unknown]
  - Dyspnoea [Unknown]
  - Asthma [Unknown]

NARRATIVE: CASE EVENT DATE: 20200301
